FAERS Safety Report 22518853 (Version 1)
Quarter: 2023Q2

REPORT INFORMATION
  Report Type: Spontaneous
  Country: EG (occurrence: None)
  Receive Date: 20230605
  Receipt Date: 20230605
  Transmission Date: 20230722
  Serious: Yes (Hospitalization)
  Sender: FDA-Public Use
  Company Number: 2023A124123

PATIENT
  Age: 13432 Day
  Sex: Male

DRUGS (1)
  1. FASENRA [Suspect]
     Active Substance: BENRALIZUMAB
     Route: 058

REACTIONS (8)
  - Minimal residual disease [Recovered/Resolved with Sequelae]
  - Fatigue [Unknown]
  - Abdominal distension [Unknown]
  - Constipation [Unknown]
  - Pharyngitis [Unknown]
  - Cheilitis [Unknown]
  - Glossitis [Recovered/Resolved]
  - Product dose omission issue [Unknown]

NARRATIVE: CASE EVENT DATE: 20230514
